FAERS Safety Report 12698749 (Version 2)
Quarter: 2017Q1

REPORT INFORMATION
  Report Type: Report from Study
  Country: JP (occurrence: JP)
  Receive Date: 20160830
  Receipt Date: 20170206
  Transmission Date: 20170428
  Serious: Yes (Death)
  Sender: FDA-Public Use
  Company Number: JP-PFIZER INC-2016406332

PATIENT
  Age: 9 Month
  Sex: Female
  Weight: 4.3 kg

DRUGS (11)
  1. SIROLIMUS. [Suspect]
     Active Substance: SIROLIMUS
     Indication: LYMPHANGIOMA
     Dosage: 0.35 MG, 1 IN 1 D
     Route: 048
     Dates: start: 20151221, end: 20160104
  2. SIROLIMUS. [Suspect]
     Active Substance: SIROLIMUS
     Dosage: 1.1 MG, 1 IN 1 D
     Route: 048
     Dates: start: 20160617, end: 20160630
  3. SIROLIMUS. [Suspect]
     Active Substance: SIROLIMUS
     Dosage: 1.2 MG, 1 IN 1 D
     Route: 048
     Dates: start: 20160527, end: 20160616
  4. PHOSRIBBON [Concomitant]
     Indication: HYPOPHOSPHATAEMIA
     Dosage: UNK
     Route: 048
     Dates: end: 20160609
  5. TRICLORYL [Concomitant]
     Active Substance: TRICLOFOS SODIUM
     Indication: SEDATION
     Dosage: UNK
     Route: 048
     Dates: start: 20160114
  6. EPPIKAJUTSUTO [Concomitant]
     Dosage: UNK
     Route: 065
     Dates: end: 20160204
  7. SIROLIMUS. [Suspect]
     Active Substance: SIROLIMUS
     Dosage: 1 MG, 1 IN 1 D
     Route: 048
     Dates: start: 20160324, end: 20160526
  8. PHENOBARBITAL. [Concomitant]
     Active Substance: PHENOBARBITAL
     Indication: SEDATION
     Dosage: UNK
     Route: 048
     Dates: start: 20160317
  9. SIROLIMUS. [Suspect]
     Active Substance: SIROLIMUS
     Dosage: 0.45 MG, 1 IN 1 D
     Route: 048
     Dates: start: 20160105, end: 20160126
  10. SIROLIMUS. [Suspect]
     Active Substance: SIROLIMUS
     Dosage: 0.65 MG, 1 IN 1 D
     Route: 048
     Dates: start: 20160311, end: 20160324
  11. SIROLIMUS. [Suspect]
     Active Substance: SIROLIMUS
     Dosage: 1.2 MG, 1 IN 1 D
     Route: 048
     Dates: start: 20160701, end: 20160814

REACTIONS (4)
  - Cardiac arrest [Fatal]
  - Off label use [Unknown]
  - Asphyxia [Fatal]
  - Hypertriglyceridaemia [Unknown]

NARRATIVE: CASE EVENT DATE: 20160602
